FAERS Safety Report 5207235-9 (Version None)
Quarter: 2007Q1

REPORT INFORMATION
  Report Type: 
  Country: None (occurrence: None)
  Receive Date: 20070110
  Receipt Date: 20070102
  Transmission Date: 20070707
  Serious: Yes (Hospitalization)
  Sender: FDA-Public Use
  Company Number: 2436225-2007-09-01

PATIENT
  Age: 64 Year
  Sex: Male
  Weight: 89.8122 kg

DRUGS (1)
  1. LOPERAMIDE [Suspect]
     Indication: DIARRHOEA
     Dosage: 2MG, 3X DAY, 047
     Dates: start: 20061107, end: 20061108

REACTIONS (1)
  - CONSTIPATION [None]
